FAERS Safety Report 7382864-5 (Version None)
Quarter: 2011Q1

REPORT INFORMATION
  Report Type: 
  Country: None (occurrence: None)
  Receive Date: 20110330
  Receipt Date: 20101025
  Transmission Date: 20110831
  Serious: Yes (Other)
  Sender: FDA-Public Use
  Company Number: US-BAYER-201034846NA

PATIENT
  Sex: Female
  Weight: 90.703 kg

DRUGS (6)
  1. YASMIN [Suspect]
  2. OCELLA [Suspect]
  3. ROXICET [Concomitant]
     Dosage: 5/325
  4. YAZ [Suspect]
  5. IBUPROFEN [Concomitant]
     Dosage: 600 MG, UNK
  6. NAPROXEN [Concomitant]
     Dosage: UNK
     Dates: start: 20010101, end: 20030101

REACTIONS (5)
  - GALLBLADDER CHOLESTEROLOSIS [None]
  - INJURY [None]
  - CHEST PAIN [None]
  - CHOLECYSTITIS CHRONIC [None]
  - CHOLELITHIASIS [None]
